FAERS Safety Report 8849402 (Version 1)
Quarter: 2012Q4

REPORT INFORMATION
  Report Type: 
  Country: US (occurrence: US)
  Receive Date: 20121017
  Receipt Date: 20121017
  Transmission Date: 20130627
  Serious: Yes (Hospitalization, Other)
  Sender: FDA-Public Use
  Company Number: US-ROXANE LABORATORIES, INC.-2012-RO-01993RO

PATIENT
  Age: 59 Year
  Sex: Male

DRUGS (3)
  1. ALPRAZOLAM INTENSOL [ORAL SOLUTION (CONCENTRATE)] 1 MG/ML [Suspect]
  2. FENTANYL [Suspect]
  3. ALCOHOL [Suspect]

REACTIONS (7)
  - Leukoencephalopathy [Recovered/Resolved]
  - Overdose [Recovered/Resolved]
  - Hypoxia [Unknown]
  - Pneumonia aspiration [Unknown]
  - Myocardial infarction [Unknown]
  - Rhabdomyolysis [Unknown]
  - Renal failure acute [Unknown]
